FAERS Safety Report 20089010 (Version 1)
Quarter: 2021Q4

REPORT INFORMATION
  Report Type: Report from Study
  Country: BR (occurrence: BR)
  Receive Date: 20211119
  Receipt Date: 20211119
  Transmission Date: 20220304
  Serious: Yes (Hospitalization)
  Sender: FDA-Public Use
  Company Number: BR-JNJFOC-20211126448

PATIENT
  Age: 43 Year
  Sex: Female

DRUGS (2)
  1. REMICADE [Suspect]
     Active Substance: INFLIXIMAB
     Indication: Colitis
     Dosage: CONFLICTINGLY REPORTED THAT THE TREATMENT WAS STOPPED IN 30-AUG-2020.?LAST INFUSION WAS PERFORMED ON
     Route: 042
     Dates: start: 20210112
  2. REMICADE [Suspect]
     Active Substance: INFLIXIMAB
     Indication: Colitis

REACTIONS (2)
  - Fungal infection [Recovering/Resolving]
  - Tuberculosis [Recovering/Resolving]

NARRATIVE: CASE EVENT DATE: 20211030
